FAERS Safety Report 8990100 (Version 1)
Quarter: 2012Q4

REPORT INFORMATION
  Report Type: Report from Study
  Country: US (occurrence: US)
  Receive Date: 20121228
  Receipt Date: 20121228
  Transmission Date: 20130627
  Serious: Yes (Other)
  Sender: FDA-Public Use
  Company Number: US-ABBOTT-12P-163-1024019-00

PATIENT
  Sex: Female

DRUGS (6)
  1. HUMIRA [Suspect]
     Indication: RHEUMATOID ARTHRITIS
     Dates: start: 2010
  2. GLIMEPIRIDE [Concomitant]
     Indication: DIABETES MELLITUS
  3. HYZAAR [Concomitant]
     Indication: HYPERTENSION
  4. NOVOLOG [Concomitant]
     Indication: DIABETES MELLITUS
  5. PREDNISONE [Concomitant]
     Indication: RHEUMATOID ARTHRITIS
  6. SYNTHROID [Concomitant]
     Indication: THYROID DISORDER

REACTIONS (2)
  - Retinal tear [Not Recovered/Not Resolved]
  - Anxiety [Not Recovered/Not Resolved]
